FAERS Safety Report 4668927-3 (Version None)
Quarter: 2005Q2

REPORT INFORMATION
  Report Type: 
  Country: None (occurrence: None)
  Receive Date: 20050523
  Receipt Date: 20041214
  Transmission Date: 20051028
  Serious: Yes (Hospitalization, Disabling, Other)
  Sender: FDA-Public Use
  Company Number: PHBS2004EC16875

PATIENT
  Age: 68 Year
  Sex: Male

DRUGS (4)
  1. THALIDOMIDE [Concomitant]
     Dosage: 200 MG DURING 5 DAYS/MONTH
     Route: 065
  2. CYCLOPHOSPHAMIDE [Concomitant]
     Route: 065
  3. DEXAMETHASONE [Concomitant]
     Route: 065
  4. ZOMETA [Suspect]
     Indication: MULTIPLE MYELOMA
     Dosage: 4 MG, QMO
     Route: 042
     Dates: start: 19990101, end: 20040901

REACTIONS (5)
  - ASEPTIC NECROSIS BONE [None]
  - JAW DISORDER [None]
  - OSTECTOMY [None]
  - PAIN IN JAW [None]
  - TOOTH DISORDER [None]
